FAERS Safety Report 5799567-0 (Version None)
Quarter: 2008Q3

REPORT INFORMATION
  Report Type: 
  Country: None (occurrence: None)
  Receive Date: 20080701
  Receipt Date: 20080701
  Transmission Date: 20090109
  Serious: Yes (Hospitalization)
  Sender: FDA-Public Use
  Company Number: None

PATIENT
  Age: 60 Year
  Sex: Female
  Weight: 72.5755 kg

DRUGS (1)
  1. CHANTIX [Suspect]
     Indication: CHRONIC OBSTRUCTIVE PULMONARY DISEASE
     Dosage: AS LABLED 1 OR 2 DAILY PO
     Route: 048
     Dates: start: 20070101, end: 20070621

REACTIONS (6)
  - CATATONIA [None]
  - DEPRESSION [None]
  - DIVORCED [None]
  - MANIA [None]
  - MENTAL DISORDER [None]
  - SUICIDAL IDEATION [None]
